FAERS Safety Report 7368369-6 (Version None)
Quarter: 2011Q1

REPORT INFORMATION
  Report Type: 
  Country: None (occurrence: None)
  Receive Date: 20110225
  Receipt Date: 20101206
  Transmission Date: 20110831
  Serious: No
  Sender: FDA-Public Use
  Company Number: 320029

PATIENT
  Age: 67 Year
  Sex: Male

DRUGS (1)
  1. VICTOZA [Suspect]
     Indication: DIABETES MELLITUS
     Dosage: 0.6 MG, QD, SUBCUTANEOUS, 1.2 MG. QD, SUBCUTANEOUS
     Route: 058
     Dates: start: 20101118

REACTIONS (4)
  - WEIGHT DECREASED [None]
  - NAUSEA [None]
  - RENAL PAIN [None]
  - ABDOMINAL PAIN UPPER [None]
